FAERS Safety Report 20584589 (Version 1)
Quarter: 2022Q1

REPORT INFORMATION
  Report Type: Spontaneous
  Country: US (occurrence: US)
  Receive Date: 20220311
  Receipt Date: 20220311
  Transmission Date: 20220423
  Serious: No
  Sender: FDA-Public Use
  Company Number: US-PFIZER INC-2016060335

PATIENT
  Age: 69 Year
  Sex: Female

DRUGS (18)
  1. LYRICA [Suspect]
     Active Substance: PREGABALIN
     Dosage: 1 TAB BY MOUTH THREE TIMES A DAY
     Route: 048
     Dates: start: 2011
  2. LIPITOR [Concomitant]
     Active Substance: ATORVASTATIN CALCIUM
     Dosage: 1 TAB BY MOUTH AT BEDTIME
     Route: 048
  3. ACETAMINOPHEN\HYDROCODONE [Concomitant]
     Active Substance: ACETAMINOPHEN\HYDROCODONE
     Dosage: 1 TAB 3 TIMES DAILY
  4. REGLAN [Concomitant]
     Active Substance: METOCLOPRAMIDE HYDROCHLORIDE
     Dosage: 1 TAB FOUR TIMES DAILY BEFORE MEALS AND AT BEDTIME
  5. AMITRIPTYLINE [Concomitant]
     Active Substance: AMITRIPTYLINE
     Dosage: 1 PO Q H. S.
     Route: 048
  6. ZANTAC [Concomitant]
     Active Substance: RANITIDINE HYDROCHLORIDE
     Dosage: 1 TAB AT BEDTIME DAILY
  7. MIRALAX [Concomitant]
     Active Substance: POLYETHYLENE GLYCOL 3350
     Dosage: AS DIRECTED DAILY
  8. ALBUTEROL [Concomitant]
     Active Substance: ALBUTEROL
     Dosage: 90 MCG/ACT AERS, AS DIRECTED
  9. SINGULAIR [Concomitant]
     Active Substance: MONTELUKAST SODIUM
     Dosage: 1 TAB ORALLY EVERY AS NEEDED (PRN)
  10. ZOLOFT [Concomitant]
     Active Substance: SERTRALINE HYDROCHLORIDE
     Dosage: 1 TAB DAILY
  11. ALTACE [Concomitant]
     Active Substance: RAMIPRIL
     Dosage: 1 TAB DAILY
  12. METHADOSE [Concomitant]
     Active Substance: METHADONE HYDROCHLORIDE
     Dosage: 1 TAB THREE TIMES DAILY
  13. BETAMETHASONE\CLOTRIMAZOLE [Concomitant]
     Active Substance: BETAMETHASONE\CLOTRIMAZOLE
     Dosage: USE AS DIRECTED (DIR) PRN
  14. LASIX [Concomitant]
     Active Substance: FUROSEMIDE
     Dosage: 2 TABS BY MOUTH ONCE A DAY
     Route: 048
  15. ZAROXOLYN [Concomitant]
     Active Substance: METOLAZONE
     Indication: Peripheral swelling
     Dosage: 1 TAB BY MOUTH EVERY OTHER DAY, PRN
     Route: 048
  16. KLOR-CON M20 [Concomitant]
     Active Substance: POTASSIUM CHLORIDE
     Dosage: 1 TAB BY MOUTH ONCE A DAY
     Route: 048
  17. ASPIRIN [Concomitant]
     Active Substance: ASPIRIN
     Dosage: 1 TAB BY MOUTH ONCE A DAY
  18. MOBIC [Concomitant]
     Active Substance: MELOXICAM
     Dosage: 1 P O Q H. S.
     Route: 048

REACTIONS (1)
  - Pain [Unknown]
